FAERS Safety Report 8977505 (Version 2)
Quarter: 2013Q1

REPORT INFORMATION
  Report Type: Report from Study
  Country: GB (occurrence: GB)
  Receive Date: 20121220
  Receipt Date: 20130102
  Transmission Date: 20140127
  Serious: Yes (Hospitalization)
  Sender: FDA-Public Use
  Company Number: GB-PFIZER INC-2012306439

PATIENT
  Age: 64 Year
  Sex: Male

DRUGS (16)
  1. DOXORUBICIN HCL [Suspect]
     Indication: DIFFUSE LARGE B-CELL LYMPHOMA
     Dosage: UNK
     Dates: start: 20090929
  2. ENDOXAN [Suspect]
     Indication: DIFFUSE LARGE B-CELL LYMPHOMA
     Dosage: UNK
     Dates: start: 20090929
  3. VINCRISTINE [Suspect]
     Indication: DIFFUSE LARGE B-CELL LYMPHOMA
     Dosage: UNK
     Dates: start: 20090929
  4. AVASTIN [Suspect]
     Indication: DIFFUSE LARGE B-CELL LYMPHOMA
     Dosage: UNK
     Dates: start: 20090929
  5. RITUXIMAB [Suspect]
     Indication: DIFFUSE LARGE B-CELL LYMPHOMA
     Dosage: UNK
     Dates: start: 20090929
  6. PREDNISOLONE [Suspect]
     Indication: DIFFUSE LARGE B-CELL LYMPHOMA
     Dosage: 100 MG, 1X/DAY
     Dates: start: 20090922
  7. PREDNISOLONE [Suspect]
     Dosage: UNK
     Dates: start: 20090929
  8. CLEXANE [Suspect]
     Dosage: 110 MG, 1X/DAY
     Dates: start: 20091019
  9. DEFLAN [Concomitant]
     Indication: MOUTH ULCERATION
     Dosage: FREQUENCY - QD
     Dates: start: 20091016
  10. LANSOPRAZOLE [Concomitant]
     Dosage: 15 MG, 1X/DAY
  11. LEVOTHYROXINE [Concomitant]
     Dosage: 150 MG, 2X/DAY
  12. RASBURICASE [Concomitant]
     Dosage: 105 MG, 1X/DAY
     Dates: start: 20090923
  13. MOVICOL [Concomitant]
     Indication: CONSTIPATION
     Dosage: 1 IN 1 D
     Dates: start: 20091016
  14. DOMPERIDONE [Concomitant]
  15. CO-CODAMOL [Concomitant]
     Dosage: AS NEEDED
  16. ALLOPURINOL [Concomitant]
     Dosage: 100 MG, 1X/DAY
     Dates: start: 20090922

REACTIONS (1)
  - Epistaxis [Recovered/Resolved]
